FAERS Safety Report 23527534 (Version 2)
Quarter: 2024Q1

REPORT INFORMATION
  Report Type: Spontaneous
  Country: US (occurrence: US)
  Receive Date: 20240215
  Receipt Date: 20240306
  Transmission Date: 20240410
  Serious: Yes (Other)
  Sender: FDA-Public Use
  Company Number: US-VERTICAL PHARMACEUTICALS-2024ALO00021

PATIENT
  Sex: Male
  Weight: 77.098 kg

DRUGS (2)
  1. NP THYROID [Suspect]
     Active Substance: LEVOTHYROXINE\LIOTHYRONINE
     Dosage: 60 MG, 1X/DAY
     Route: 048
  2. RABEPRAZOLE [Suspect]
     Active Substance: RABEPRAZOLE
     Indication: Gastrooesophageal reflux disease
     Dosage: UNK; HIGH DAILY DOSAGE
     Dates: start: 202310

REACTIONS (11)
  - Hypothyroidism [Not Recovered/Not Resolved]
  - Thyroxine decreased [Not Recovered/Not Resolved]
  - Blood thyroid stimulating hormone decreased [Not Recovered/Not Resolved]
  - Gastrooesophageal reflux disease [Not Recovered/Not Resolved]
  - Hiatus hernia [Unknown]
  - Fatigue [Not Recovered/Not Resolved]
  - Temperature intolerance [Not Recovered/Not Resolved]
  - Dry skin [Not Recovered/Not Resolved]
  - Weight increased [Not Recovered/Not Resolved]
  - Alopecia [Not Recovered/Not Resolved]
  - Drug interaction [Not Recovered/Not Resolved]

NARRATIVE: CASE EVENT DATE: 20230101
